FAERS Safety Report 4281956-7 (Version None)
Quarter: 2004Q1

REPORT INFORMATION
  Report Type: 
  Country: None (occurrence: None)
  Receive Date: 20040128
  Receipt Date: 20040120
  Transmission Date: 20041129
  Serious: Yes (Death, Other)
  Sender: FDA-Public Use
  Company Number: USA-2003-0011016

PATIENT
  Sex: Male

DRUGS (1)
  1. OXYCONTIN [Suspect]
     Dosage: NASAL
     Route: 045

REACTIONS (3)
  - DRUG ABUSER [None]
  - MEDICATION ERROR [None]
  - OVERDOSE [None]
